FAERS Safety Report 13137028 (Version 1)
Quarter: 2017Q1

REPORT INFORMATION
  Report Type: Spontaneous
  Country: CA (occurrence: CA)
  Receive Date: 20170123
  Receipt Date: 20170123
  Transmission Date: 20170428
  Serious: Yes (Life-Threatening)
  Sender: FDA-Public Use
  Company Number: CA-TEVA-732242ACC

PATIENT
  Age: 53 Year
  Sex: Female
  Weight: 77 kg

DRUGS (2)
  1. VINORELBINE TARTRATE FOR INJECTION [Concomitant]
     Active Substance: VINORELBINE TARTRATE
  2. CISPLATIN INJECTION [Suspect]
     Active Substance: CISPLATIN
     Indication: LUNG NEOPLASM MALIGNANT

REACTIONS (2)
  - Cyanosis [Unknown]
  - Subclavian artery thrombosis [Unknown]
